FAERS Safety Report 10671531 (Version 1)
Quarter: 2014Q4

REPORT INFORMATION
  Report Type: Report from Study
  Country: US (occurrence: US)
  Receive Date: 20141223
  Receipt Date: 20141223
  Transmission Date: 20150529
  Serious: Yes (Hospitalization, Other)
  Sender: FDA-Public Use
  Company Number: GXBR2014US002641

PATIENT
  Sex: Male
  Weight: 15.87 kg

DRUGS (3)
  1. MULTIPLE VITAMINS [Concomitant]
     Active Substance: VITAMINS
     Indication: PRODUCT USED FOR UNKNOWN INDICATION
     Dosage: UNK DF, UNK
  2. OMNITROPE [Suspect]
     Active Substance: SOMATROPIN
     Indication: BODY HEIGHT BELOW NORMAL
     Dosage: 0.8 MG, QD
     Route: 065
     Dates: start: 201308
  3. PROBIOTICS                         /07325001/ [Concomitant]
     Indication: PRODUCT USED FOR UNKNOWN INDICATION
     Dosage: UNK DF, UNK

REACTIONS (4)
  - Myositis [Recovered/Resolved]
  - Abasia [Recovered/Resolved]
  - Hypophagia [Not Recovered/Not Resolved]
  - Pancreatitis [Recovered/Resolved]
